FAERS Safety Report 5721447-7 (Version None)
Quarter: 2008Q2

REPORT INFORMATION
  Report Type: 
  Country: None (occurrence: None)
  Receive Date: 20080428
  Receipt Date: 20080428
  Transmission Date: 20081010
  Serious: Yes (Life-Threatening)
  Sender: FDA-Public Use
  Company Number: None

PATIENT
  Age: 38 Year
  Sex: Female
  Weight: 97.0698 kg

DRUGS (1)
  1. POLIDOCANOL [Suspect]
     Indication: VARICOSE VEIN
     Dosage: IV
     Route: 042
     Dates: start: 20070417, end: 20070417

REACTIONS (1)
  - ANAPHYLACTIC REACTION [None]
